FAERS Safety Report 13675730 (Version 3)
Quarter: 2018Q2

REPORT INFORMATION
  Report Type: Report from Study
  Country: ZA (occurrence: ZA)
  Receive Date: 20170621
  Receipt Date: 20180411
  Transmission Date: 20180711
  Serious: Yes (Hospitalization, Other)
  Sender: FDA-Public Use
  Company Number: ZA-GILEAD-2017-0278617

PATIENT
  Age: 29 Year
  Sex: Male
  Weight: 82.2 kg

DRUGS (2)
  1. MANDRAX [Concomitant]
     Active Substance: METHAQUALONE
     Indication: SUBSTANCE USE
     Dosage: UNK
     Route: 055
     Dates: start: 201702
  2. EFAVIRENZ/EMTRICITABINE/TENOFOVIR DISOPROXIL FUMARATE [Suspect]
     Active Substance: EFAVIRENZ\EMTRICITABINE\TENOFOVIR DISOPROXIL FUMARATE
     Indication: HIV INFECTION
     Dosage: 1 DF, QD
     Route: 048
     Dates: start: 20140605, end: 201705

REACTIONS (1)
  - Suicide attempt [Recovered/Resolved]

NARRATIVE: CASE EVENT DATE: 20170518
